FAERS Safety Report 5832309-9 (Version None)
Quarter: 2008Q3

REPORT INFORMATION
  Report Type: 
  Country: None (occurrence: None)
  Receive Date: 20080804
  Receipt Date: 20080725
  Transmission Date: 20090109
  Serious: Yes (Hospitalization)
  Sender: FDA-Public Use
  Company Number: B0494857B

PATIENT
  Sex: Male

DRUGS (5)
  1. IMIJECT [Suspect]
  2. ISOPTIN [Suspect]
  3. NICARDIPINE HCL [Concomitant]
     Dates: start: 20080403
  4. ATOSIBAN [Concomitant]
     Dates: start: 20080403
  5. CORTICOIDS [Concomitant]

REACTIONS (6)
  - DRUG EXPOSURE DURING PREGNANCY [None]
  - FOETAL GROWTH RETARDATION [None]
  - FOETAL HYPOKINESIA [None]
  - OLIGOHYDRAMNIOS [None]
  - PREMATURE BABY [None]
  - SMALL FOR DATES BABY [None]
